FAERS Safety Report 7077395-6 (Version None)
Quarter: 2010Q4

REPORT INFORMATION
  Report Type: 
  Country: None (occurrence: None)
  Receive Date: 20101029
  Receipt Date: 20101029
  Transmission Date: 20110411
  Serious: Yes (Life-Threatening)
  Sender: FDA-Public Use
  Company Number: None

PATIENT
  Age: 59 Year
  Sex: Female

DRUGS (1)
  1. SALSALATE 750 MG [Suspect]
     Indication: ARTHRITIS
     Dosage: 750 MG THREE TIMES A DAY PO
     Route: 048
     Dates: start: 20100315, end: 20101023

REACTIONS (1)
  - RENAL IMPAIRMENT [None]
